FAERS Safety Report 18873900 (Version 2)
Quarter: 2021Q1

REPORT INFORMATION
  Report Type: Spontaneous
  Country: GB (occurrence: GB)
  Receive Date: 20210210
  Receipt Date: 20210224
  Transmission Date: 20210420
  Serious: Yes (Other)
  Sender: FDA-Public Use
  Company Number: GB-GILEAD-2021-0515137

PATIENT
  Age: 26 Year
  Sex: Male

DRUGS (3)
  1. PENTAMIDINE [Concomitant]
     Active Substance: PENTAMIDINE
     Indication: PROPHYLAXIS
  2. ACICLOVIR [Concomitant]
     Active Substance: ACYCLOVIR
     Indication: PROPHYLAXIS
     Dosage: 400 MG
     Route: 048
  3. YESCARTA [Suspect]
     Active Substance: AXICABTAGENE CILOLEUCEL
     Indication: DIFFUSE LARGE B-CELL LYMPHOMA
     Dosage: UNK
     Route: 042
     Dates: start: 20200707, end: 20200707

REACTIONS (4)
  - Cardiomegaly [Not Recovered/Not Resolved]
  - Viral infection [Unknown]
  - Myocarditis [Not Recovered/Not Resolved]
  - Pericarditis [Unknown]

NARRATIVE: CASE EVENT DATE: 202012
